FAERS Safety Report 11963599 (Version 1)
Quarter: 2016Q1

REPORT INFORMATION
  Report Type: Spontaneous
  Country: None (occurrence: None)
  Receive Date: 20160121
  Receipt Date: 20160121
  Transmission Date: 20160526
  Serious: Yes (Life-Threatening)
  Sender: FDA-Public Use
  Company Number: None

PATIENT
  Age: 43 Year
  Sex: Female
  Weight: 53 kg

DRUGS (1)
  1. KETOROLAC [Suspect]
     Active Substance: KETOROLAC\KETOROLAC TROMETHAMINE
     Indication: TOOTHACHE
     Dosage: 1 PILLS TWICE DAILY TAKEN BY MOUTH
     Route: 048
     Dates: start: 20160111, end: 20160113

REACTIONS (1)
  - Blood urine present [None]

NARRATIVE: CASE EVENT DATE: 20160112
